FAERS Safety Report 9166564 (Version 1)
Quarter: 2013Q1

REPORT INFORMATION
  Report Type: Other
  Country: US (occurrence: US)
  Receive Date: 20130315
  Receipt Date: 20130315
  Transmission Date: 20140127
  Serious: Yes (Death, Other)
  Sender: FDA-Public Use
  Company Number: US-VERTEX PHARMACEUTICALS INC.-2013-003631

PATIENT
  Age: 56 Year
  Sex: Female

DRUGS (3)
  1. INCIVEK [Suspect]
     Indication: HEPATITIS C
     Dosage: 750 MG, TID
     Route: 048
     Dates: start: 20121214, end: 20121217
  2. INTERFERON [Suspect]
     Indication: HEPATITIS C
     Dosage: 1 UNK, UNK
     Route: 058
     Dates: start: 20121214, end: 20121214
  3. RIBAVIRIN [Concomitant]
     Dosage: UNK
     Dates: start: 20121214

REACTIONS (4)
  - Intestinal obstruction [Fatal]
  - Intestinal perforation [Fatal]
  - Dyspnoea [Unknown]
  - Swelling face [Unknown]
